FAERS Safety Report 5131355-0 (Version None)
Quarter: 2006Q4

REPORT INFORMATION
  Report Type: 
  Country: None (occurrence: None)
  Receive Date: 20061016
  Receipt Date: 20061005
  Transmission Date: 20070319
  Serious: Yes (Hospitalization, Other)
  Sender: FDA-Public Use
  Company Number: 2003114539

PATIENT
  Age: 51 Year
  Sex: Male
  Weight: 85.2762 kg

DRUGS (12)
  1. NARDIL [Suspect]
     Indication: DEPRESSION
     Dosage: 90 MG (DAILY), ORAL
     Route: 048
     Dates: start: 19860101
  2. NEURONTIN [Concomitant]
  3. CLONAZEPAM [Concomitant]
  4. PROAMATINE [Concomitant]
  5. PROVIGIL [Concomitant]
  6. CELEBREX [Concomitant]
  7. ASPIRIN [Concomitant]
  8. CENTRUM SILVER (ASCORBIC ACID, CALCIUM, MINERALS NOS, RETINOL, TOCOPHE [Concomitant]
  9. OS-CAL (CALCIUM CARBONATE, COLECALCIFEROL) [Concomitant]
  10. DARVOCET [Concomitant]
  11. FOSAMAX [Concomitant]
  12. IMITREX [Concomitant]

REACTIONS (6)
  - HEADACHE [None]
  - MIGRAINE [None]
  - NEPHROLITHIASIS [None]
  - NIGHTMARE [None]
  - PNEUMONIA [None]
  - SURGERY [None]
